FAERS Safety Report 9329338 (Version 1)
Quarter: 2013Q2

REPORT INFORMATION
  Report Type: Spontaneous
  Country: AU (occurrence: AU)
  Receive Date: 20130604
  Receipt Date: 20130604
  Transmission Date: 20140414
  Serious: Yes (Disabling, Other)
  Sender: FDA-Public Use
  Company Number: AU-GLAXOSMITHKLINE-B0896160A

PATIENT
  Age: 68 Year
  Sex: Female

DRUGS (4)
  1. NEOTIGASON [Suspect]
     Indication: PITYRIASIS RUBRA PILARIS
     Dosage: 10MG PER DAY
     Route: 048
     Dates: start: 20130429
  2. PREDNISONE [Concomitant]
  3. CORTISONE [Concomitant]
  4. RIVOTRIL [Concomitant]
     Dosage: .5MG TWICE PER DAY

REACTIONS (2)
  - Walking disability [Not Recovered/Not Resolved]
  - Joint swelling [Not Recovered/Not Resolved]
